FAERS Safety Report 22197980 (Version 2)
Quarter: 2023Q2

REPORT INFORMATION
  Report Type: Report from Study
  Country: FR (occurrence: FR)
  Receive Date: 20230411
  Receipt Date: 20230530
  Transmission Date: 20230722
  Serious: Yes (Other)
  Sender: FDA-Public Use
  Company Number: FR-ASTELLAS-2023US003991

PATIENT
  Age: 69 Year
  Sex: Female

DRUGS (9)
  1. ENFORTUMAB VEDOTIN [Suspect]
     Active Substance: ENFORTUMAB VEDOTIN
     Indication: Bladder cancer
     Dosage: 1.25 MG/KG, CYCLIC (CYCLE 1 DAY 1)(4 VIALS OF 20 MG)
     Route: 042
     Dates: start: 20221014
  2. ENFORTUMAB VEDOTIN [Suspect]
     Active Substance: ENFORTUMAB VEDOTIN
     Dosage: UNK UNK, CYCLIC (CYCLE 1 DAY 15)(4 VIALS OF 20MG)
     Route: 042
     Dates: start: 20221028
  3. ENFORTUMAB VEDOTIN [Suspect]
     Active Substance: ENFORTUMAB VEDOTIN
     Dosage: UNK UNK, CYCLIC (CYCLE 2 DAY 1)(2 VIALS OF 20MG AND 1 VIAL OF 30 MG)
     Route: 042
     Dates: start: 20221110
  4. ENFORTUMAB VEDOTIN [Suspect]
     Active Substance: ENFORTUMAB VEDOTIN
     Dosage: UNK UNK, CYCLIC (CYCLE 2 DAY 8)(2 VIALS OF 20MG AND 1 VIAL OF 30 MG)
     Route: 042
     Dates: start: 20221118
  5. ENFORTUMAB VEDOTIN [Suspect]
     Active Substance: ENFORTUMAB VEDOTIN
     Dosage: UNK UNK, CYCLIC (CYCLE 2 DAY 15)(2 VIALS OF 20MG AND 1 VIAL OF 30 MG)
     Route: 042
     Dates: start: 20221125
  6. ENFORTUMAB VEDOTIN [Suspect]
     Active Substance: ENFORTUMAB VEDOTIN
     Dosage: UNK UNK, CYCLIC (CYCLE 3 DAY 1)(2 VIALS OF 20MG AND 1 VIAL OF 30 MG)
     Route: 042
     Dates: start: 20221209
  7. ENFORTUMAB VEDOTIN [Suspect]
     Active Substance: ENFORTUMAB VEDOTIN
     Dosage: UNK UNK, CYCLIC (CYCLE 3 DAY 8)(2 VIALS OF 20MG AND 1 VIAL OF 30 MG)
     Route: 042
     Dates: start: 20221216
  8. ENFORTUMAB VEDOTIN [Suspect]
     Active Substance: ENFORTUMAB VEDOTIN
     Dosage: UNK UNK, CYCLIC (CYCLE 3 DAY 15)(2 VIALS OF 20MG AND 1 VIAL OF 30 MG)
     Route: 042
     Dates: start: 20221223, end: 202212
  9. ENFORTUMAB VEDOTIN [Suspect]
     Active Substance: ENFORTUMAB VEDOTIN
     Route: 042
     Dates: start: 20230322

REACTIONS (1)
  - Lichenoid keratosis [Recovered/Resolved]

NARRATIVE: CASE EVENT DATE: 20221201
